FAERS Safety Report 10104546 (Version 1)
Quarter: 2014Q2

REPORT INFORMATION
  Report Type: Report from Study
  Country: US (occurrence: US)
  Receive Date: 20140424
  Receipt Date: 20140424
  Transmission Date: 20141212
  Serious: Yes (Other)
  Sender: FDA-Public Use
  Company Number: US-ABBVIE-14P-163-1226704-00

PATIENT
  Age: 33 Year
  Sex: Female

DRUGS (17)
  1. HUMIRA [Suspect]
     Indication: CROHN^S DISEASE
     Dates: start: 20130330
  2. HUMIRA [Suspect]
  3. SAVELLA [Concomitant]
     Indication: PAIN MANAGEMENT
  4. SAVELLA [Concomitant]
     Indication: FIBROMYALGIA
  5. SAVELLA [Concomitant]
     Indication: MIGRAINE
  6. SAVELLA [Concomitant]
     Indication: CYSTITIS INTERSTITIAL
  7. SAVELLA [Concomitant]
     Indication: CROHN^S DISEASE
  8. MECLIZINE [Concomitant]
     Indication: VERTIGO
     Dosage: THREE TIMES DAILY PRN, DOESN^T TAKE IT OFTEN
  9. DULOXETINE [Concomitant]
     Indication: PAIN MANAGEMENT
  10. CLONAZEPAM [Concomitant]
     Indication: INSOMNIA
     Dosage: GENERIC, EVERY NIGHT AT BEDTIME
  11. XANAFLEX [Concomitant]
     Indication: SLEEP DISORDER
     Dosage: EVERYNIGHT AT BEDTIME
  12. FLAVOXATE [Concomitant]
     Indication: CYSTITIS INTERSTITIAL
  13. VESICARE [Concomitant]
     Indication: CYSTITIS INTERSTITIAL
  14. ELMIRON [Concomitant]
     Indication: CYSTITIS INTERSTITIAL
  15. LEVOCETIRIZINE [Concomitant]
     Indication: HYPERSENSITIVITY
  16. ALLERGY SHOTS [Concomitant]
     Indication: PRODUCT USED FOR UNKNOWN INDICATION
  17. VITAMIN D [Concomitant]
     Indication: PRODUCT USED FOR UNKNOWN INDICATION
     Route: 048

REACTIONS (5)
  - Renal pain [Not Recovered/Not Resolved]
  - Nephrolithiasis [Not Recovered/Not Resolved]
  - Frequent bowel movements [Unknown]
  - Frequent bowel movements [Not Recovered/Not Resolved]
  - Abdominal pain [Not Recovered/Not Resolved]
